FAERS Safety Report 8622663-7 (Version None)
Quarter: 2012Q3

REPORT INFORMATION
  Report Type: 
  Country: None (occurrence: None)
  Receive Date: 20120827
  Receipt Date: 20120816
  Transmission Date: 20120928
  Serious: Yes (Hospitalization)
  Sender: FDA-Public Use
  Company Number: CA-JNJFOC-20120808439

PATIENT
  Sex: Female
  Weight: 86.2 kg

DRUGS (18)
  1. REMICADE [Suspect]
     Route: 042
     Dates: start: 20110713
  2. REMICADE [Suspect]
     Route: 042
     Dates: start: 20110519
  3. REMICADE [Suspect]
     Route: 042
     Dates: start: 20100714
  4. REMICADE [Suspect]
     Route: 042
     Dates: start: 20101014
  5. REMICADE [Suspect]
     Route: 042
     Dates: start: 20120816
  6. CYMBALTA [Concomitant]
     Indication: DEPRESSION
     Dosage: ONCE DAILY
     Route: 065
  7. REMICADE [Suspect]
     Route: 042
     Dates: start: 20110901
  8. REMICADE [Suspect]
     Route: 042
     Dates: start: 20110324
  9. REMICADE [Suspect]
     Route: 042
     Dates: start: 20110127
  10. CLONAZEPAM [Concomitant]
     Indication: DEPRESSION
     Dosage: HALF TABLET TWICE A DAY
     Route: 065
  11. REMICADE [Suspect]
     Route: 042
     Dates: start: 20120410
  12. REMICADE [Suspect]
     Route: 042
     Dates: start: 20100826
  13. REMICADE [Suspect]
     Route: 042
     Dates: start: 20100728
  14. MERCAPTOPURINE [Concomitant]
     Indication: CROHN'S DISEASE
     Dosage: 1 TAB OD
     Route: 048
  15. REMICADE [Suspect]
     Indication: CROHN'S DISEASE
     Route: 042
     Dates: start: 20120214
  16. REMICADE [Suspect]
     Route: 042
     Dates: start: 20111220
  17. REMICADE [Suspect]
     Route: 042
     Dates: start: 20111024
  18. REMICADE [Suspect]
     Route: 042
     Dates: start: 20101206

REACTIONS (3)
  - NEOPLASM MALIGNANT [None]
  - ALANINE AMINOTRANSFERASE INCREASED [None]
  - CROHN'S DISEASE [None]
